FAERS Safety Report 9766409 (Version 2)
Quarter: 2015Q1

REPORT INFORMATION
  Report Type: Spontaneous
  Country: US (occurrence: US)
  Receive Date: 20131217
  Receipt Date: 20150119
  Transmission Date: 20150721
  Serious: Yes (Other)
  Sender: FDA-Public Use
  Company Number: US-GLAXOSMITHKLINE-A1027168A

PATIENT
  Sex: Male
  Weight: 123 kg

DRUGS (16)
  1. COLCRYS [Concomitant]
     Active Substance: COLCHICINE
  2. LOVAZA [Concomitant]
     Active Substance: OMEGA-3-ACID ETHYL ESTERS
  3. PANTOPRAZOLE [Concomitant]
     Active Substance: PANTOPRAZOLE SODIUM
  4. VOTRIENT [Suspect]
     Active Substance: PAZOPANIB HYDROCHLORIDE
     Dosage: 600 MG, QD
  5. VALSARTAN. [Concomitant]
     Active Substance: VALSARTAN
  6. VOTRIENT [Suspect]
     Active Substance: PAZOPANIB HYDROCHLORIDE
     Indication: MALIGNANT URINARY TRACT NEOPLASM
     Dosage: 800 MG, QD
     Route: 065
     Dates: start: 20130508
  7. HUMALOG [Concomitant]
     Active Substance: INSULIN LISPRO
  8. VOTRIENT [Suspect]
     Active Substance: PAZOPANIB HYDROCHLORIDE
     Dosage: UNK
     Route: 048
  9. PARICALCITOL. [Concomitant]
     Active Substance: PARICALCITOL
  10. PEPCID [Concomitant]
     Active Substance: FAMOTIDINE
  11. MULTIVITAMIN [Concomitant]
     Active Substance: VITAMINS
  12. ULORIC [Concomitant]
     Active Substance: FEBUXOSTAT
  13. COQ10 [Concomitant]
     Active Substance: UBIDECARENONE
  14. ONDANSETRON [Concomitant]
     Active Substance: ONDANSETRON
  15. LANSOPRAZOLE. [Concomitant]
     Active Substance: LANSOPRAZOLE
  16. IMODIUM [Concomitant]
     Active Substance: LOPERAMIDE HYDROCHLORIDE

REACTIONS (12)
  - Blister [Unknown]
  - Adverse drug reaction [Unknown]
  - Flatulence [Unknown]
  - Rash [Unknown]
  - Diabetes mellitus [Unknown]
  - Erythema [Unknown]
  - Diarrhoea [Unknown]
  - Blood glucose decreased [Unknown]
  - Pain in extremity [Unknown]
  - Helicobacter infection [Unknown]
  - Nausea [Unknown]
  - Drug dose omission [Unknown]

NARRATIVE: CASE EVENT DATE: 2013
